FAERS Safety Report 11627475 (Version 2)
Quarter: 2016Q1

REPORT INFORMATION
  Report Type: Report from Study
  Country: US (occurrence: US)
  Receive Date: 20151013
  Receipt Date: 20160101
  Transmission Date: 20160525
  Serious: Yes (Other)
  Sender: FDA-Public Use
  Company Number: US-AMGEN-USASP2015106273

PATIENT
  Sex: Female

DRUGS (1)
  1. ENBREL [Suspect]
     Active Substance: ETANERCEPT
     Indication: RHEUMATOID ARTHRITIS
     Dosage: UNK UNK, UNK
     Route: 065

REACTIONS (12)
  - Hip arthroplasty [Unknown]
  - Device issue [Unknown]
  - Weight decreased [Unknown]
  - Inappropriate schedule of drug administration [Unknown]
  - Muscle atrophy [Unknown]
  - Injection site nodule [Recovered/Resolved]
  - Condition aggravated [Unknown]
  - Chest discomfort [Unknown]
  - Malaise [Unknown]
  - Injection site discharge [Unknown]
  - Injection site reaction [Unknown]
  - Hand deformity [Unknown]

NARRATIVE: CASE EVENT DATE: 2013
